FAERS Safety Report 8474335 (Version 3)
Quarter: 2013Q1

REPORT INFORMATION
  Report Type: Spontaneous
  Country: US (occurrence: US)
  Receive Date: 20120323
  Receipt Date: 20130117
  Transmission Date: 20140127
  Serious: Yes (Life-Threatening, Congenital Anomaly, Other)
  Sender: FDA-Public Use
  Company Number: US-PFIZER INC-2011275934

PATIENT
  Sex: Male

DRUGS (10)
  1. ZOLOFT [Suspect]
     Dosage: UNK
     Route: 064
     Dates: start: 2003, end: 2004
  2. ZOLOFT [Suspect]
     Dosage: UNK
     Route: 064
     Dates: start: 200403, end: 200501
  3. CLONAZEPAM [Concomitant]
     Dosage: UNK
     Route: 064
  4. IBUPROFEN [Concomitant]
     Dosage: UNK
     Route: 064
  5. CEPHALEXIN [Concomitant]
     Dosage: UNK
     Route: 064
  6. HYDROCODONE W/ACETAMINOPHEN [Concomitant]
     Dosage: UNK
     Route: 064
  7. PRENATAL VITAMINS [Concomitant]
     Dosage: UNK
     Route: 064
  8. ZITHROMAX [Concomitant]
     Dosage: UNK
     Route: 064
  9. PENICILLIN NOS [Concomitant]
     Dosage: UNK
     Route: 064
  10. TYLENOL WITH CODEINE [Concomitant]
     Dosage: UNK
     Route: 064

REACTIONS (7)
  - Maternal exposure timing unspecified [Unknown]
  - Cleft palate [Unknown]
  - Congenital anomaly [Unknown]
  - Autism [Unknown]
  - Autism spectrum disorder [Unknown]
  - Dysphagia [Unknown]
  - Mental disability [Unknown]
